FAERS Safety Report 5605838-0 (Version None)
Quarter: 2008Q1

REPORT INFORMATION
  Report Type: 
  Country: None (occurrence: None)
  Receive Date: 20080129
  Receipt Date: 20080118
  Transmission Date: 20080703
  Serious: Yes (Other)
  Sender: FDA-Public Use
  Company Number: PHHY2008BR00822

PATIENT
  Age: 29 Year
  Sex: Male
  Weight: 75 kg

DRUGS (2)
  1. TEGRETOL [Suspect]
     Dosage: 200 MG,
     Route: 048
     Dates: start: 20040101, end: 20060101
  2. TEGRETOL [Suspect]
     Dosage: 200 MG, 1 TAB ON 14TH NIGHT,1TAB 15TH MORNIN
     Route: 048
     Dates: start: 20080114, end: 20080115

REACTIONS (19)
  - ASTHENIA [None]
  - BURNING SENSATION [None]
  - CHEST PAIN [None]
  - CONDITION AGGRAVATED [None]
  - ERYTHEMA [None]
  - EYE IRRITATION [None]
  - HAEMATURIA [None]
  - HEADACHE [None]
  - HYPOAESTHESIA ORAL [None]
  - INSOMNIA [None]
  - LIP SWELLING [None]
  - LIP ULCERATION [None]
  - ORAL DISCOMFORT [None]
  - PAIN [None]
  - PRURITUS [None]
  - PYREXIA [None]
  - SWELLING [None]
  - SWELLING FACE [None]
  - TONGUE DISORDER [None]
